FAERS Safety Report 4751211-7 (Version None)
Quarter: 2005Q3

REPORT INFORMATION
  Report Type: 
  Country: None (occurrence: None)
  Receive Date: 20050823
  Receipt Date: 20050823
  Transmission Date: 20060218
  Serious: Yes (Other)
  Sender: FDA-Public Use
  Company Number: None

PATIENT
  Sex: Female
  Weight: 58.9676 kg

DRUGS (6)
  1. CLOZAPINE [Suspect]
     Indication: SCHIZOAFFECTIVE DISORDER
     Dosage: ONE PO HS
     Route: 048
     Dates: start: 20000101
  2. HALDOL [Concomitant]
  3. LISINOPRIL [Concomitant]
  4. ZOLOFT [Concomitant]
  5. PRIMIDONE [Concomitant]
  6. ATIVAN [Concomitant]

REACTIONS (1)
  - NEUTROPHIL COUNT ABNORMAL [None]
